FAERS Safety Report 7083737-8 (Version None)
Quarter: 2010Q4

REPORT INFORMATION
  Report Type: 
  Country: None (occurrence: None)
  Receive Date: 20101025
  Receipt Date: 20101021
  Transmission Date: 20110411
  Serious: Yes (Hospitalization)
  Sender: FDA-Public Use
  Company Number: 2008SP022757

PATIENT
  Age: 65 Year
  Sex: Female

DRUGS (9)
  1. RIBAVIRIN [Suspect]
     Indication: HEPATITIS C
     Dosage: QD;PO ; 800 MG;QD
     Route: 048
     Dates: start: 20080423, end: 20080701
  2. RIBAVIRIN [Suspect]
     Indication: HEPATITIS C
     Dosage: QD;PO ; 800 MG;QD
     Route: 048
     Dates: start: 20080702
  3. PEG-INTRON [Suspect]
     Indication: HEPATITIS C
     Dosage: QW;SC ; 800 MCG;QW
     Route: 058
     Dates: start: 20080423, end: 20080813
  4. PEG-INTRON [Suspect]
     Indication: HEPATITIS C
     Dosage: QW;SC ; 800 MCG;QW
     Route: 058
     Dates: start: 20080814
  5. INVESTIGATIONAL DRUG (INVESTIGATIONAL DRUG) [Suspect]
     Indication: THROMBOCYTOPENIA
     Dosage: QD;PO
     Route: 048
     Dates: start: 20080423
  6. ELTROMBOPAG (ELTROMBOPAG) [Suspect]
     Indication: THROMBOCYTOPENIA
     Dosage: 25 MG;QD;PO ; 50 MG;QD;PO
     Route: 048
     Dates: start: 20080401, end: 20080415
  7. ELTROMBOPAG (ELTROMBOPAG) [Suspect]
     Indication: THROMBOCYTOPENIA
     Dosage: 25 MG;QD;PO ; 50 MG;QD;PO
     Route: 048
     Dates: start: 20080416, end: 20080422
  8. TRIAMTERENE [Concomitant]
  9. CANDESARTAN CILEXETIL [Concomitant]

REACTIONS (1)
  - OESOPHAGEAL VARICES HAEMORRHAGE [None]
